FAERS Safety Report 9081097 (Version 1)
Quarter: 2013Q1

REPORT INFORMATION
  Report Type: Report from Study
  Country: US (occurrence: US)
  Receive Date: 20130130
  Receipt Date: 20130130
  Transmission Date: 20140127
  Serious: No
  Sender: FDA-Public Use
  Company Number: US-ABBOTT-12P-163-0962236-00

PATIENT
  Age: 50 Year
  Sex: Female

DRUGS (16)
  1. HUMIRA 40 MG/0.8 ML PEN [Suspect]
     Indication: RHEUMATOID ARTHRITIS
     Dosage: INITIAL DOSE ON 28 JUL 2012
     Route: 058
     Dates: start: 20120728
  2. METHOTREXATE [Concomitant]
     Indication: RHEUMATOID ARTHRITIS
     Dosage: 6 PILLS WEEKLY
  3. LEFLUNOMIDE [Concomitant]
     Indication: RHEUMATOID ARTHRITIS
     Dosage: DAILY
  4. MOBIC [Concomitant]
     Indication: PAIN
  5. FOLIC ACID [Concomitant]
     Indication: VITAMIN SUPPLEMENTATION
     Dosage: DAILY
  6. NORVASC [Concomitant]
     Indication: BLOOD PRESSURE
  7. PAXIL [Concomitant]
     Indication: DEPRESSION
     Dosage: DAILY
  8. SIMVASTATIN [Concomitant]
     Indication: BLOOD CHOLESTEROL INCREASED
     Dosage: DAILY
  9. XANAX [Concomitant]
     Indication: ANXIETY
  10. ADVAIR [Concomitant]
     Indication: ASTHMA
     Dosage: 250/50 2 PUFFS IN AM AND 2 PUFFS IN PM
  11. SINGULAIR [Concomitant]
     Indication: ASTHMA
     Dosage: DAILY
  12. CETIRIZINE [Concomitant]
     Indication: HYPERSENSITIVITY
     Dosage: DAILY
  13. FLUTICASONE [Concomitant]
     Indication: HYPERSENSITIVITY
     Dosage: 2 SPRAYS EACH NOSTRIL DAILY
     Route: 045
  14. VENTOLIN [Concomitant]
     Indication: ASTHMA
  15. ALBUTEROL NEBULIZER [Concomitant]
     Indication: ASTHMA
  16. OXYBUTYNIN [Concomitant]
     Indication: STRESS URINARY INCONTINENCE
     Dosage: DAILY

REACTIONS (1)
  - Injection site pain [Not Recovered/Not Resolved]
